FAERS Safety Report 4372840-9 (Version None)
Quarter: 2004Q2

REPORT INFORMATION
  Report Type: 
  Country: None (occurrence: None)
  Receive Date: 20040526
  Receipt Date: 20040513
  Transmission Date: 20050107
  Serious: Yes (Death)
  Sender: FDA-Public Use
  Company Number: 2004032699

PATIENT
  Sex: Female

DRUGS (1)
  1. DIABINESE [Suspect]
     Indication: DIABETES MELLITUS
     Dosage: ORAL
     Route: 048
     Dates: end: 19840101

REACTIONS (1)
  - DIABETIC COMPLICATION [None]
